FAERS Safety Report 7470120-6 (Version None)
Quarter: 2011Q2

REPORT INFORMATION
  Report Type: 
  Country: None (occurrence: None)
  Receive Date: 20110510
  Receipt Date: 20110429
  Transmission Date: 20111010
  Serious: Yes (Other)
  Sender: FDA-Public Use
  Company Number: A0905612A

PATIENT
  Age: 58 Year
  Sex: Male

DRUGS (1)
  1. ROSIGLITAZONE MALEATE [Suspect]
     Dosage: 4MG TWICE PER DAY
     Route: 048
     Dates: start: 20030210, end: 20070601

REACTIONS (2)
  - CARDIAC FAILURE CONGESTIVE [None]
  - PAIN [None]
